FAERS Safety Report 10874086 (Version 1)
Quarter: 2015Q1

REPORT INFORMATION
  Report Type: Report from Study
  Country: US (occurrence: US)
  Receive Date: 20150227
  Receipt Date: 20150227
  Transmission Date: 20150721
  Serious: Yes (Other)
  Sender: FDA-Public Use
  Company Number: US-RB PHARMACEUTICALS LIMITED-RB-076238-2015

PATIENT
  Age: 61 Year
  Sex: Female

DRUGS (2)
  1. SUBOXONE [Suspect]
     Active Substance: BUPRENORPHINE HYDROCHLORIDE\NALOXONE HYDROCHLORIDE
     Indication: DRUG DEPENDENCE
     Dosage: 8 MG OF VARIOUS DOSES FOR SEVERAL MONTHS
     Route: 060
     Dates: start: 2012
  2. BUPRENORPHINE GENERIC TAB [Suspect]
     Active Substance: BUPRENORPHINE
     Indication: DRUG DEPENDENCE
     Dosage: 8 MG OF VARIOUS DOSES FOR ABOUT 3 YEARS
     Route: 060
     Dates: end: 20150211

REACTIONS (7)
  - Intentional underdose [Recovered/Resolved]
  - Wrong technique in drug usage process [Recovered/Resolved]
  - Head injury [Recovered/Resolved]
  - Blood pressure increased [Unknown]
  - Epistaxis [Unknown]
  - Syncope [Recovered/Resolved]
  - Rash [Recovered/Resolved]

NARRATIVE: CASE EVENT DATE: 2012
